FAERS Safety Report 23034758 (Version 1)
Quarter: 2023Q4

REPORT INFORMATION
  Report Type: Spontaneous
  Country: NL (occurrence: NL)
  Receive Date: 20231005
  Receipt Date: 20231005
  Transmission Date: 20240109
  Serious: Yes (Other)
  Sender: FDA-Public Use
  Company Number: NL-002147023-NVSC2023NL214238

PATIENT

DRUGS (1)
  1. GLIVEC [Suspect]
     Active Substance: IMATINIB MESYLATE
     Indication: Gastrointestinal stromal tumour
     Dosage: 500 MG, QD
     Route: 065
     Dates: start: 2016

REACTIONS (21)
  - Haemorrhage [Unknown]
  - Periorbital oedema [Unknown]
  - Fatigue [Unknown]
  - Head discomfort [Unknown]
  - Skin depigmentation [Unknown]
  - Dry skin [Unknown]
  - Hot flush [Unknown]
  - Lacrimation increased [Unknown]
  - Photophobia [Unknown]
  - Dry mouth [Unknown]
  - Dysphonia [Unknown]
  - Dyspepsia [Unknown]
  - Eructation [Unknown]
  - Asthenia [Unknown]
  - Joint stiffness [Unknown]
  - Musculoskeletal stiffness [Unknown]
  - Muscle spasms [Unknown]
  - Muscle tightness [Unknown]
  - Nausea [Unknown]
  - Food allergy [Unknown]
  - Off label use [Unknown]
